FAERS Safety Report 21615601 (Version 2)
Quarter: 2022Q4

REPORT INFORMATION
  Report Type: Spontaneous
  Country: CN (occurrence: CN)
  Receive Date: 20221118
  Receipt Date: 20221129
  Transmission Date: 20230113
  Serious: Yes (Death, Life-Threatening, Other)
  Sender: FDA-Public Use
  Company Number: CN-BAYER-2022A160853

PATIENT
  Sex: Male
  Weight: 70 kg

DRUGS (1)
  1. ULTRAVIST [Suspect]
     Active Substance: IOPROMIDE
     Indication: Angiocardiogram
     Dosage: 70 ML, ONCE
     Route: 013
     Dates: start: 20221101, end: 20221101

REACTIONS (10)
  - Anaphylactic shock [Fatal]
  - Atrial fibrillation [None]
  - Multiple organ dysfunction syndrome [None]
  - Melaena [None]
  - Pruritus [Fatal]
  - Feeling hot [Fatal]
  - Loss of consciousness [Fatal]
  - Blood pressure immeasurable [Fatal]
  - Respiration abnormal [Fatal]
  - Generalised oedema [Fatal]

NARRATIVE: CASE EVENT DATE: 20221101
